FAERS Safety Report 7103868-3 (Version None)
Quarter: 2010Q4

REPORT INFORMATION
  Report Type: 
  Country: None (occurrence: None)
  Receive Date: 20101115
  Receipt Date: 20101104
  Transmission Date: 20110411
  Serious: Yes (Other)
  Sender: FDA-Public Use
  Company Number: PHHY2010AU75048

PATIENT

DRUGS (1)
  1. ZOMETA [Suspect]
     Dosage: 4 MG/MONTH

REACTIONS (3)
  - ABSCESS [None]
  - ENDODONTIC PROCEDURE [None]
  - TOOTH EXTRACTION [None]
